FAERS Safety Report 9772853 (Version 1)
Quarter: 2013Q4

REPORT INFORMATION
  Report Type: Spontaneous
  Country: ES (occurrence: ES)
  Receive Date: 20131219
  Receipt Date: 20131219
  Transmission Date: 20140711
  Serious: Yes (Other)
  Sender: FDA-Public Use
  Company Number: ES-PFIZER INC-2013363169

PATIENT
  Age: 5 Year
  Sex: Female

DRUGS (1)
  1. GENOTONORM [Suspect]
     Dosage: UNK

REACTIONS (1)
  - Hypothyroidism [Unknown]
